FAERS Safety Report 5040504-4 (Version None)
Quarter: 2006Q2

REPORT INFORMATION
  Report Type: 
  Country: None (occurrence: None)
  Receive Date: 20060630
  Receipt Date: 20060504
  Transmission Date: 20061013
  Serious: Yes (Other)
  Sender: FDA-Public Use
  Company Number: BR-ROCHE-447001

PATIENT
  Age: 30 Year
  Sex: Female
  Weight: 56 kg

DRUGS (5)
  1. RIVOTRIL [Suspect]
     Indication: PANIC ATTACK
     Dosage: STRENGTH OF 2 MG
     Route: 048
     Dates: start: 20060410, end: 20060515
  2. RIVOTRIL [Suspect]
     Dosage: STRENGTH BEING 0.5 MG
     Route: 048
     Dates: start: 20060515, end: 20060619
  3. RIVOTRIL [Suspect]
     Dosage: STRENGTH BEING 0.5 MG
     Route: 048
     Dates: start: 20060620
  4. SERTRALINE [Suspect]
     Indication: PANIC ATTACK
     Dosage: DRUG REPROTED AS SSERTRALINE(MAGISTRAL FORMULA)
     Route: 050
     Dates: start: 20060515, end: 20060615
  5. SERTRALINE [Concomitant]
     Dosage: DRUG REPORTED AS SERTRALINE/ SERENATA
     Route: 048
     Dates: start: 20060410, end: 20060515

REACTIONS (13)
  - ANOREXIA [None]
  - ANXIETY [None]
  - CRYING [None]
  - DEPRESSION [None]
  - DYSPNOEA [None]
  - HEAD DISCOMFORT [None]
  - HEADACHE [None]
  - HEART RATE INCREASED [None]
  - HYPERTENSION [None]
  - INSOMNIA [None]
  - PALPITATIONS [None]
  - PANIC ATTACK [None]
  - WEIGHT DECREASED [None]
